FAERS Safety Report 9419032 (Version 1)
Quarter: 2013Q3

REPORT INFORMATION
  Report Type: Report from Study
  Country: BE (occurrence: BE)
  Receive Date: 20130725
  Receipt Date: 20130725
  Transmission Date: 20140515
  Serious: Yes (Hospitalization, Disabling, Other)
  Sender: FDA-Public Use
  Company Number: PHHY2011BE105972

PATIENT
  Age: 21 Year
  Sex: Female
  Weight: 67 kg

DRUGS (9)
  1. NEORAL [Suspect]
     Indication: RENAL TRANSPLANT
     Dosage: 250 MG, UNK
     Route: 048
     Dates: start: 20110129, end: 20110815
  2. NEORAL [Suspect]
     Dosage: 125 MG, QAM/100 MG, QPM
     Route: 048
     Dates: start: 20110816, end: 20121002
  3. NEORAL [Suspect]
     Dosage: 125 MG, BID
     Route: 048
     Dates: start: 20121002, end: 20130521
  4. NEORAL [Suspect]
     Dosage: 125 MG, BID
     Route: 048
     Dates: start: 20130531
  5. NEORAL [Suspect]
     Dosage: 125 MG, BID
     Route: 048
     Dates: start: 20130601
  6. NEORAL [Suspect]
     Dosage: 125 MG, BID
     Route: 048
     Dates: start: 20130608
  7. MYFORTIC [Suspect]
     Indication: RENAL TRANSPLANT
     Dosage: 720 MG, BID
     Route: 048
     Dates: start: 20100730
  8. NO TREATMENT RECEIVED [Suspect]
     Indication: RENAL TRANSPLANT
     Dosage: NO TREATMENT
  9. METHYLPREDNISOLONE [Concomitant]
     Indication: RENAL TRANSPLANT
     Dosage: UNK
     Dates: end: 20101028

REACTIONS (8)
  - Renal failure acute [Not Recovered/Not Resolved]
  - Kidney transplant rejection [Not Recovered/Not Resolved]
  - Ovarian cyst [Recovered/Resolved]
  - Escherichia urinary tract infection [Recovered/Resolved]
  - Streptococcal urinary tract infection [Recovering/Resolving]
  - Iron deficiency anaemia [Recovered/Resolved]
  - Vaginal infection [Unknown]
  - Hyperkalaemia [Recovered/Resolved]
